FAERS Safety Report 10509856 (Version 8)
Quarter: 2016Q2

REPORT INFORMATION
  Report Type: Spontaneous
  Country: CA (occurrence: CA)
  Receive Date: 20141010
  Receipt Date: 20160531
  Transmission Date: 20160815
  Serious: Yes (Other)
  Sender: FDA-Public Use
  Company Number: CA-AMGEN-CANSP2014072804

PATIENT
  Age: 79 Year
  Sex: Male

DRUGS (13)
  1. RITUXAN [Suspect]
     Active Substance: RITUXIMAB
     Dosage: 1025 MG, 1 IN 28 D
     Route: 042
     Dates: start: 20140724
  2. DOCOSAHEXAENOIC ACID W/EICOSAPENTAE/06852001/ [Concomitant]
     Dosage: UNK
  3. RITUXAN [Suspect]
     Active Substance: RITUXIMAB
     Indication: CHRONIC LYMPHOCYTIC LEUKAEMIA
     Dosage: 769 MG, 28 DAYS
     Route: 042
     Dates: start: 20140626
  4. BENDAMUSTINE [Suspect]
     Active Substance: BENDAMUSTINE
     Indication: CHRONIC LYMPHOCYTIC LEUKAEMIA
     Dosage: UNK
     Route: 065
  5. LIPITOR [Concomitant]
     Active Substance: ATORVASTATIN CALCIUM
     Dosage: UNK
  6. ATENOLOL. [Concomitant]
     Active Substance: ATENOLOL
     Dosage: UNK
  7. RESVERATROL [Concomitant]
     Active Substance: RESVERATROL
     Dosage: UNK
  8. VITAMIN B12 [Concomitant]
     Active Substance: CYANOCOBALAMIN
     Dosage: UNK
  9. GRAPE SEED                         /01364601/ [Concomitant]
     Dosage: UNK
  10. GARLIC                             /01570501/ [Concomitant]
     Active Substance: GARLIC
     Dosage: UNK
  11. FILGRASTIM [Suspect]
     Active Substance: FILGRASTIM
     Indication: CHRONIC LYMPHOCYTIC LEUKAEMIA
     Dosage: UNK
     Route: 065
  12. OMEGA 3                            /06852001/ [Concomitant]
     Active Substance: OMEGA-3 FATTY ACIDS
     Dosage: UNK
  13. ASPIRIN                            /00002701/ [Concomitant]
     Active Substance: ASPIRIN
     Dosage: 81 MG, UNK
     Route: 065

REACTIONS (5)
  - Infusion related reaction [Recovered/Resolved]
  - Infection [Recovered/Resolved]
  - Fungal infection [Not Recovered/Not Resolved]
  - Urticaria [Recovered/Resolved]
  - Pyrexia [Recovered/Resolved]

NARRATIVE: CASE EVENT DATE: 20140626
